FAERS Safety Report 22194459 (Version 4)
Quarter: 2023Q4

REPORT INFORMATION
  Report Type: Report from Study
  Country: US (occurrence: US)
  Receive Date: 20230411
  Receipt Date: 20231106
  Transmission Date: 20240109
  Serious: Yes (Hospitalization)
  Sender: FDA-Public Use
  Company Number: US-ABBVIE-4722226

PATIENT
  Sex: Male

DRUGS (6)
  1. HUMIRA [Suspect]
     Active Substance: ADALIMUMAB
     Indication: Colitis ulcerative
     Dosage: FORM STRENGTH: 40 MILLIGRAM, HUMIRA CITRATE FREE PEN
     Route: 058
     Dates: start: 20230327, end: 20230713
  2. HUMIRA [Suspect]
     Active Substance: ADALIMUMAB
     Dosage: CITRATE FREE, FORM STRENGTH: 40 MILLIGRAM, LAST ADMIN DATE: MAR 2023
     Route: 058
     Dates: start: 20230323
  3. HUMIRA [Suspect]
     Active Substance: ADALIMUMAB
     Route: 058
     Dates: start: 2023
  4. FERROUS SULFATE [Concomitant]
     Active Substance: FERROUS SULFATE
     Indication: Mineral supplementation
     Dosage: 325 (65 FE) MG
  5. ATROPINE\DIPHENOXYLATE [Concomitant]
     Active Substance: ATROPINE\DIPHENOXYLATE
     Indication: Diarrhoea
     Dosage: 2.5-0.025 MG
  6. METRONIDAZOLE [Concomitant]
     Active Substance: METRONIDAZOLE
     Indication: Infection

REACTIONS (6)
  - Bacteraemia [Not Recovered/Not Resolved]
  - Constipation [Recovering/Resolving]
  - Colitis [Unknown]
  - Fall [Unknown]
  - Bacterial sepsis [Unknown]
  - Large intestinal stenosis [Recovering/Resolving]

NARRATIVE: CASE EVENT DATE: 20230101
